FAERS Safety Report 24156670 (Version 1)
Quarter: 2024Q3

REPORT INFORMATION
  Report Type: Spontaneous
  Country: US (occurrence: None)
  Receive Date: 20240730
  Receipt Date: 20240730
  Transmission Date: 20241017
  Serious: Yes (Hospitalization)
  Sender: Public
  Company Number: None

PATIENT
  Age: 74 Year
  Sex: Female
  Weight: 78 kg

DRUGS (6)
  1. DALFAMPRIDINE [Suspect]
     Active Substance: DALFAMPRIDINE
     Indication: Nystagmus
     Dosage: 5 MG TWICE A DAY ORAL ?
     Route: 048
     Dates: start: 20240608, end: 20240723
  2. LEVOTHYROXINE [Concomitant]
     Active Substance: LEVOTHYROXINE\LEVOTHYROXINE SODIUM
     Dates: start: 19760101
  3. ACEBUTOLOL [Concomitant]
     Active Substance: ACEBUTOLOL
     Dates: start: 20120202
  4. ZETIA [Concomitant]
     Active Substance: EZETIMIBE
     Dates: start: 20210303
  5. ROSUVASTATIN [Concomitant]
     Active Substance: ROSUVASTATIN\ROSUVASTATIN CALCIUM
     Dates: start: 20210303
  6. ASPIRIN [Concomitant]
     Active Substance: ASPIRIN
     Dates: start: 20210404

REACTIONS (19)
  - Treatment noncompliance [None]
  - Paraesthesia [None]
  - Discomfort [None]
  - Paraesthesia [None]
  - Muscular weakness [None]
  - Feeling abnormal [None]
  - Vomiting [None]
  - Muscle spasms [None]
  - Delirium [None]
  - Hallucination [None]
  - Amnesia [None]
  - Paraesthesia [None]
  - Feeling abnormal [None]
  - Muscle spasms [None]
  - Muscle spasms [None]
  - Paralysis [None]
  - Product substitution issue [None]
  - Product preparation error [None]
  - Overdose [None]

NARRATIVE: CASE EVENT DATE: 20240708
